FAERS Safety Report 14480324 (Version 1)
Quarter: 2018Q1

REPORT INFORMATION
  Report Type: Report from Study
  Country: US (occurrence: BR)
  Receive Date: 20180202
  Receipt Date: 20180202
  Transmission Date: 20180509
  Serious: Yes (Hospitalization, Other)
  Sender: FDA-Public Use
  Company Number: US-SUNOVION-2018SUN000279

PATIENT
  Sex: Female
  Weight: 74 kg

DRUGS (17)
  1. INDAPAMIDE. [Concomitant]
     Active Substance: INDAPAMIDE
     Dosage: 1.5 MG, UNK
  2. SPIRIVA [Concomitant]
     Active Substance: TIOTROPIUM BROMIDE MONOHYDRATE
     Dosage: 2.5 ?G, UNK
  3. INDACATEROL [Suspect]
     Active Substance: INDACATEROL
     Indication: EMPHYSEMA
     Dosage: 1 DF, QD
     Route: 055
     Dates: start: 2004
  4. INDACATEROL AND GLYCOPYRROLATE [Suspect]
     Active Substance: GLYCOPYRROLATE\INDACATEROL MALEATE
     Indication: EMPHYSEMA
     Dosage: 1 DF, QD
     Route: 055
     Dates: start: 201611
  5. ALENIA [Concomitant]
     Active Substance: BUDESONIDE\FORMOTEROL FUMARATE
     Dosage: 12/400 UNK, UNK
     Dates: start: 2004
  6. PARACETAMOL [Concomitant]
     Active Substance: ACETAMINOPHEN
     Dosage: UNK
  7. AEROLIN [Concomitant]
     Active Substance: ALBUTEROL
     Dosage: 12 ?G, UNK
  8. XOLAIR [Suspect]
     Active Substance: OMALIZUMAB
     Indication: ASTHMA
     Dosage: 2 DF ((150 MG), EVERY 15 DAYS)(300 MG), UNK
     Route: 058
     Dates: start: 201701
  9. XOLAIR [Suspect]
     Active Substance: OMALIZUMAB
     Indication: EMPHYSEMA
  10. TIOTROPIUM [Concomitant]
     Active Substance: TIOTROPIUM
     Dosage: 2.5 ?G, UNK
     Dates: start: 2004
  11. OMEPRAZOLE. [Concomitant]
     Active Substance: OMEPRAZOLE
     Dosage: 40 MG, UNK
  12. AZITHROMYCIN ANHYDROUS. [Concomitant]
     Active Substance: AZITHROMYCIN ANHYDROUS
     Dosage: 50 MG, UNK
  13. MORPHINE [Concomitant]
     Active Substance: MORPHINE
     Dosage: 10 MG, UNK
     Dates: start: 201708
  14. CODEINE [Concomitant]
     Active Substance: CODEINE
     Dosage: 30 MG, UNK
  15. LYRICA [Concomitant]
     Active Substance: PREGABALIN
     Dosage: 75 MG, UNK
  16. FLUIMUCIL DEXTROMETHORPHANE [Concomitant]
     Dosage: 600 MG, UNK
  17. ACERTIL [Concomitant]
     Active Substance: PERINDOPRIL ARGININE
     Dosage: 10 MG, UNK

REACTIONS (16)
  - Dyspnoea [Not Recovered/Not Resolved]
  - Vision blurred [Unknown]
  - Pneumonia [Unknown]
  - Asthma [Unknown]
  - Fall [Unknown]
  - Emphysema [Unknown]
  - Lung disorder [Unknown]
  - Toxicity to various agents [Unknown]
  - Lung infection [Not Recovered/Not Resolved]
  - Syncope [Unknown]
  - Weight decreased [Unknown]
  - Blood cholesterol abnormal [Unknown]
  - Product use in unapproved indication [Unknown]
  - Blood culture positive [Unknown]
  - Bronchitis [Unknown]
  - Blood uric acid abnormal [Unknown]
